FAERS Safety Report 9113082 (Version 1)
Quarter: 2013Q1

REPORT INFORMATION
  Report Type: Spontaneous
  Country: US (occurrence: US)
  Receive Date: 20130211
  Receipt Date: 20130211
  Transmission Date: 20140127
  Serious: No
  Sender: FDA-Public Use
  Company Number: US-ASTRAZENECA-2012SE05167

PATIENT
  Age: 77 Year
  Sex: Female

DRUGS (4)
  1. NEXIUM [Suspect]
     Indication: GASTROOESOPHAGEAL REFLUX DISEASE
     Route: 048
  2. NEXIUM [Suspect]
     Indication: DYSPEPSIA
     Route: 048
  3. PEPCID COMPLETE [Concomitant]
  4. CHOLESTEROL MEDICATION [Concomitant]

REACTIONS (5)
  - Dyspepsia [Unknown]
  - Muscle spasms [Unknown]
  - Diarrhoea [Unknown]
  - Drug prescribing error [Unknown]
  - Drug dose omission [Unknown]
